FAERS Safety Report 6018524-2 (Version None)
Quarter: 2008Q4

REPORT INFORMATION
  Report Type: 
  Country: None (occurrence: None)
  Receive Date: 20081223
  Receipt Date: 20081211
  Transmission Date: 20090506
  Serious: Yes (Hospitalization, Other)
  Sender: FDA-Public Use
  Company Number: JP-PFIZER INC-2008087546

PATIENT

DRUGS (7)
  1. SOLANAX [Suspect]
     Indication: DEPRESSION
     Dosage: 0.4 MG, 1X/DAY
     Dates: start: 20080223, end: 20080307
  2. AMOXAPINE [Suspect]
     Indication: DEPRESSION
     Dosage: 10 MG, 3X/DAY
     Route: 048
     Dates: start: 20070901, end: 20080307
  3. AMOXAPINE [Suspect]
     Indication: IRRITABLE BOWEL SYNDROME
  4. POLYCARBOPHIL CALCIUM [Concomitant]
     Indication: IRRITABLE BOWEL SYNDROME
     Route: 048
     Dates: start: 20050401, end: 20080307
  5. PAXIL [Concomitant]
     Indication: DEPRESSION
     Route: 048
     Dates: start: 20060401, end: 20060601
  6. SERTRALINE [Concomitant]
     Indication: DEPRESSION
     Route: 048
     Dates: start: 20070401, end: 20070401
  7. ROHYPNOL [Concomitant]
     Indication: INSOMNIA
     Dates: start: 20050501, end: 20080307

REACTIONS (2)
  - HEPATITIS ACUTE [None]
  - NEUROLEPTIC MALIGNANT SYNDROME [None]
